FAERS Safety Report 4489885-0 (Version None)
Quarter: 2004Q4

REPORT INFORMATION
  Report Type: 
  Country: None (occurrence: None)
  Receive Date: 20041026
  Receipt Date: 20041021
  Transmission Date: 20050328
  Serious: Yes (Death)
  Sender: FDA-Public Use
  Company Number: 200410675BNE

PATIENT
  Age: 75 Year
  Sex: Male
  Weight: 70 kg

DRUGS (8)
  1. ASPIRIN [Suspect]
     Dates: start: 20030901
  2. AMIODARONE HCL [Suspect]
     Indication: ATRIAL FIBRILLATION
     Dosage: 200 MG, BID, ORAL
     Route: 048
     Dates: start: 20031013, end: 20040224
  3. WARFARIN SODIUM [Concomitant]
  4. FRUSEMIDE [Concomitant]
  5. SIMVASTATIN [Concomitant]
  6. COLOFAC [Concomitant]
  7. FYBOGEL [Concomitant]
  8. CALCICHEW [Concomitant]

REACTIONS (4)
  - GENERAL PHYSICAL HEALTH DETERIORATION [None]
  - PULMONARY FIBROSIS [None]
  - PULMONARY HYPERTENSION [None]
  - RIGHT VENTRICULAR FAILURE [None]
